FAERS Safety Report 16894610 (Version 2)
Quarter: 2019Q4

REPORT INFORMATION
  Report Type: Spontaneous
  Country: US (occurrence: US)
  Receive Date: 20191008
  Receipt Date: 20191212
  Transmission Date: 20200122
  Serious: No
  Sender: FDA-Public Use
  Company Number: US-PFIZER INC-2019428846

PATIENT
  Age: 7 Decade
  Sex: Female
  Weight: 54.43 kg

DRUGS (2)
  1. PREMARIN [Suspect]
     Active Substance: ESTROGENS, CONJUGATED
     Indication: VULVOVAGINAL DRYNESS
     Dosage: UNK UNK, ALTERNATE DAY (0.625MG, USE EVERY OTHER DAY TO VAGINAL AREA, TWO TIMES PER WEEK)
     Route: 067
  2. PREMARIN [Suspect]
     Active Substance: ESTROGENS, CONJUGATED
     Indication: VULVOVAGINAL PRURITUS
     Dosage: UNK, 2X/WEEK
     Route: 067
     Dates: start: 2014

REACTIONS (4)
  - Intentional product use issue [Unknown]
  - Drug ineffective for unapproved indication [Unknown]
  - Vaginal haemorrhage [Unknown]
  - Off label use [Unknown]
